FAERS Safety Report 9355284 (Version 2)
Quarter: 2014Q1

REPORT INFORMATION
  Report Type: Spontaneous
  Country: US (occurrence: US)
  Receive Date: 20130619
  Receipt Date: 20140128
  Transmission Date: 20141002
  Serious: Yes (Life-Threatening, Other)
  Sender: FDA-Public Use
  Company Number: US-BAYER-2013-074407

PATIENT
  Sex: Female

DRUGS (1)
  1. YAZ [Suspect]
     Dosage: UNK

REACTIONS (11)
  - Gallbladder non-functioning [None]
  - Cholecystitis chronic [None]
  - Organ failure [None]
  - Pain [None]
  - Anxiety [None]
  - Injury [None]
  - Anhedonia [None]
  - General physical health deterioration [None]
  - Emotional distress [None]
  - Asthenia [None]
  - Fatigue [None]
